FAERS Safety Report 17858198 (Version 4)
Quarter: 2021Q1

REPORT INFORMATION
  Report Type: Spontaneous
  Country: PL (occurrence: PL)
  Receive Date: 20200604
  Receipt Date: 20210308
  Transmission Date: 20210419
  Serious: Yes (Life-Threatening, Hospitalization, Other)
  Sender: FDA-Public Use
  Company Number: NVSC2020PL151416

PATIENT
  Age: 74 Year
  Sex: Male

DRUGS (21)
  1. PARACETAMOL [Interacting]
     Active Substance: ACETAMINOPHEN
     Indication: HEADACHE
     Dosage: UNK
     Route: 065
  2. PROPRANOLOL [Interacting]
     Active Substance: PROPRANOLOL HYDROCHLORIDE
     Indication: ATRIAL FIBRILLATION
     Dosage: 20 MG, QD (10 MILLIGRAM, BID, 2 X 10 MG/DAY)
     Route: 065
  3. AMIODARONE HYDROCHLORIDE. [Interacting]
     Active Substance: AMIODARONE HYDROCHLORIDE
     Dosage: UNK
     Route: 042
  4. CIPROFLOXACIN. [Suspect]
     Active Substance: CIPROFLOXACIN
     Indication: URINARY TRACT INFECTION
     Dosage: 500 MG, QD (BEFORE SLEEP), AT BEDTIME, BEFORE BED)
     Route: 065
  5. RIVAROXABAN [Interacting]
     Active Substance: RIVAROXABAN
     Dosage: 200 MG, QD
     Route: 065
  6. POTASSIUM CHLORIDE. [Concomitant]
     Active Substance: POTASSIUM CHLORIDE
     Dosage: UNK
     Route: 065
  7. OSELTAMIVIR [Suspect]
     Active Substance: OSELTAMIVIR
     Indication: COVID-19
     Dosage: 75 MG (A SINGLE 75MG DOSE OF OSELTAMIVIR)
     Route: 065
  8. AMIODARONE HYDROCHLORIDE. [Interacting]
     Active Substance: AMIODARONE HYDROCHLORIDE
     Indication: VENTRICULAR TACHYCARDIA
     Dosage: 200 MG (TOTAL)
     Route: 065
  9. CIPROFLOXACIN. [Interacting]
     Active Substance: CIPROFLOXACIN
     Indication: BACTERIURIA
     Dosage: 500 MG (AT A BEDTIME)
     Route: 065
  10. POTASSIUM CHLORIDE. [Concomitant]
     Active Substance: POTASSIUM CHLORIDE
     Indication: ATRIAL FIBRILLATION
     Dosage: UNK
     Route: 042
  11. OMEPRAZOLE. [Interacting]
     Active Substance: OMEPRAZOLE
     Indication: PROPHYLAXIS
     Dosage: 40 MG, QD (AT BED TIME BY PARA ORAL)
     Route: 048
  12. RIVAROXABAN [Interacting]
     Active Substance: RIVAROXABAN
     Indication: ATRIAL FIBRILLATION
     Dosage: 20 MG QD (TOTAL)
     Route: 065
  13. METAMIZOLE [Interacting]
     Active Substance: METAMIZOLE
     Indication: HEADACHE
     Dosage: UNK (EVERY)
     Route: 065
  14. AMIODARONE HYDROCHLORIDE. [Interacting]
     Active Substance: AMIODARONE HYDROCHLORIDE
     Indication: ATRIAL FIBRILLATION
     Dosage: 200 MG, QD
     Route: 042
  15. KETOPROFEN. [Interacting]
     Active Substance: KETOPROFEN
     Indication: HEADACHE
     Dosage: UNK (EVERY)
     Route: 065
  16. AZITHROMYCIN ANHYDROUS. [Suspect]
     Active Substance: AZITHROMYCIN ANHYDROUS
     Indication: COVID-19
     Dosage: 500 MG (A SINGLE 500 DOSE OF AZITHROMYCIN)
     Route: 065
  17. AGOMELATINE [Interacting]
     Active Substance: AGOMELATINE
     Indication: ANHEDONIA
     Dosage: 25 MG, QD (AT BEDTIME )
     Route: 065
  18. IBUPROFEN. [Interacting]
     Active Substance: IBUPROFEN
     Indication: HEADACHE
     Dosage: UNK (EVERY)
     Route: 065
  19. METOPROLOL. [Concomitant]
     Active Substance: METOPROLOL
     Indication: VENTRICULAR TACHYCARDIA
     Dosage: UNK (INITIALLY USED INTRAVENOUSLY ? THEN ORALLY)
     Route: 042
  20. METOPROLOL. [Concomitant]
     Active Substance: METOPROLOL
     Dosage: 200 MG (2 TABLETS OF METOPROLOL TARTRATE 100MG)
     Route: 048
  21. AGOMELATINE [Interacting]
     Active Substance: AGOMELATINE
     Indication: DEPRESSION
     Dosage: 25 MG/DAY (BEFORE SLEEP) AT BEDTIME
     Route: 048

REACTIONS (21)
  - Pain [Recovered/Resolved]
  - Drug interaction [Unknown]
  - Drug ineffective [Unknown]
  - Contraindicated product administered [Recovered/Resolved]
  - Hyperhidrosis [Recovered/Resolved]
  - Intentional product misuse [Unknown]
  - Blood sodium decreased [Recovered/Resolved]
  - Asthenia [Recovered/Resolved]
  - Tachycardia [Recovered/Resolved]
  - Abdominal pain [Recovered/Resolved]
  - Off label use [Unknown]
  - Alanine aminotransferase increased [Recovered/Resolved]
  - Fatigue [Recovered/Resolved]
  - Abdominal pain upper [Recovered/Resolved]
  - Blood potassium decreased [Recovered/Resolved]
  - Anhedonia [Recovered/Resolved]
  - Diarrhoea [Recovered/Resolved]
  - Product use in unapproved indication [Unknown]
  - Headache [Recovered/Resolved]
  - Condition aggravated [Recovered/Resolved]
  - Depression [Recovered/Resolved]

NARRATIVE: CASE EVENT DATE: 2019
